FAERS Safety Report 9343076 (Version 3)
Quarter: 2014Q1

REPORT INFORMATION
  Report Type: Spontaneous
  Country: US (occurrence: US)
  Receive Date: 20130611
  Receipt Date: 20140305
  Transmission Date: 20141002
  Serious: Yes (Hospitalization)
  Sender: FDA-Public Use
  Company Number: US-B.I. PHARMACEUTICALS,INC./RIDGEFIELD-2013-BI-16265BP

PATIENT
  Sex: Female
  Weight: 60.33 kg

DRUGS (22)
  1. PRADAXA [Suspect]
     Indication: CEREBROVASCULAR ACCIDENT PROPHYLAXIS
     Dosage: 150 MG
     Route: 065
     Dates: start: 20120105, end: 20120518
  2. PRADAXA [Suspect]
     Indication: THROMBOSIS PROPHYLAXIS
  3. PRADAXA [Suspect]
     Indication: ATRIAL FIBRILLATION
  4. ASPIRIN EC [Concomitant]
     Dosage: 81 MG
     Route: 048
     Dates: start: 2011
  5. RELION HUMULIN [Concomitant]
     Route: 065
  6. CARVEDILOL [Concomitant]
     Dosage: 50 MG
     Route: 048
  7. GABAPENTIN [Concomitant]
     Dosage: 600 MG
     Route: 048
  8. FUROSEMIDE [Concomitant]
     Dosage: 40 MG
     Route: 048
  9. ADVAIR [Concomitant]
     Route: 065
  10. PANTOPRAZOLE [Concomitant]
     Dosage: 40 MG
     Route: 048
  11. FOLIC ACID [Concomitant]
     Dosage: 1 MG
     Route: 048
  12. ALPRAZOLAM [Concomitant]
     Dosage: 0.25 MG
     Route: 048
  13. DOXAZOSIN [Concomitant]
     Dosage: 8 MG
     Route: 048
  14. HYDRALAZINE [Concomitant]
     Dosage: 200 MG
     Route: 048
  15. TRICOR [Concomitant]
     Dosage: 145 MG
     Route: 048
  16. CILOSTAZOL [Concomitant]
     Dosage: 100 MG
     Route: 048
  17. MULTAQ [Concomitant]
     Dosage: 800 MG
     Route: 065
     Dates: start: 2011
  18. DILTIAZEM [Concomitant]
     Route: 065
  19. KLOR-CON [Concomitant]
     Dosage: 10 MEQ
     Route: 048
  20. PRAVASTATIN [Concomitant]
     Dosage: 40 MG
     Route: 048
  21. HUMULOG [Concomitant]
     Route: 065
  22. ACETAMINOPHEN [Concomitant]
     Route: 048

REACTIONS (3)
  - Diverticulum intestinal haemorrhagic [Recovered/Resolved]
  - Anaemia [Unknown]
  - Abdominal pain [Unknown]
